FAERS Safety Report 5087754-9 (Version None)
Quarter: 2006Q3

REPORT INFORMATION
  Report Type: 
  Country: None (occurrence: None)
  Receive Date: 20060822
  Receipt Date: 20060822
  Transmission Date: 20061208
  Serious: No
  Sender: FDA-Public Use
  Company Number: None

PATIENT
  Sex: Male

DRUGS (6)
  1. ZYPREXA [Suspect]
     Dosage: 15MGM  AT BEDTIME  PO
     Route: 048
     Dates: start: 20060805, end: 20060812
  2. TOPROL-XL [Concomitant]
  3. LISINOPRIL [Concomitant]
  4. GLYBURIDE AND METFORMIN HCL [Concomitant]
  5. BENICOR [Concomitant]
  6. LANTUS [Concomitant]

REACTIONS (2)
  - DRUG INEFFECTIVE [None]
  - PHARMACEUTICAL PRODUCT COMPLAINT [None]
